FAERS Safety Report 19818503 (Version 2)
Quarter: 2021Q3

REPORT INFORMATION
  Report Type: Spontaneous
  Country: BR (occurrence: BR)
  Receive Date: 20210911
  Receipt Date: 20210916
  Transmission Date: 20211014
  Serious: Yes (Hospitalization, Other)
  Sender: FDA-Public Use
  Company Number: NVSC2021BR180408

PATIENT
  Age: 14 Year
  Sex: Male
  Weight: 52 kg

DRUGS (1)
  1. REVOLADE [Suspect]
     Active Substance: ELTROMBOPAG OLAMINE
     Indication: IMMUNE THROMBOCYTOPENIA
     Dosage: 50 MG, QD
     Route: 065
     Dates: start: 20210426, end: 20210505

REACTIONS (8)
  - Haemorrhage [Unknown]
  - Platelet count decreased [Unknown]
  - Bilirubin conjugated increased [Unknown]
  - Hepatotoxicity [Unknown]
  - Hepatic function abnormal [Unknown]
  - Blood bilirubin increased [Unknown]
  - Jaundice [Recovered/Resolved]
  - Transaminases increased [Unknown]

NARRATIVE: CASE EVENT DATE: 20210505
